FAERS Safety Report 5721224-7 (Version None)
Quarter: 2008Q2

REPORT INFORMATION
  Report Type: 
  Country: None (occurrence: None)
  Receive Date: 20080428
  Receipt Date: 20080428
  Transmission Date: 20081010
  Serious: Yes (Other)
  Sender: FDA-Public Use
  Company Number: None

PATIENT
  Age: 5 Year
  Sex: Male
  Weight: 27.2158 kg

DRUGS (1)
  1. SINGULAIR [Suspect]
     Indication: ASTHMA
     Dosage: 1 CHEWABLE TABLET 1 PER DAY PO
     Route: 048
     Dates: start: 20041001, end: 20080327

REACTIONS (6)
  - AFFECTIVE DISORDER [None]
  - AGGRESSION [None]
  - DEPRESSION [None]
  - MIDDLE INSOMNIA [None]
  - SOMNAMBULISM [None]
  - SUICIDAL IDEATION [None]
